FAERS Safety Report 9754304 (Version 4)
Quarter: 2014Q1

REPORT INFORMATION
  Report Type: Spontaneous
  Country: FR (occurrence: FR)
  Receive Date: 20131213
  Receipt Date: 20140107
  Transmission Date: 20141002
  Serious: Yes (Death, Hospitalization, Other)
  Sender: FDA-Public Use
  Company Number: FR-TEVA-450509USA

PATIENT
  Age: 66 Year
  Sex: Male

DRUGS (6)
  1. BENDAMUSTINE [Suspect]
     Indication: PLASMA CELL MYELOMA
     Dates: start: 20090831, end: 20110531
  2. BORTEZOMIB [Suspect]
     Indication: PLASMA CELL MYELOMA
     Route: 042
     Dates: start: 201109
  3. BORTEZOMIB [Suspect]
     Route: 042
     Dates: start: 20111010, end: 20111114
  4. BORTEZOMIB [Suspect]
     Route: 042
     Dates: start: 20111117, end: 20111215
  5. LENALIDOMIDE [Suspect]
     Indication: PLASMA CELL MYELOMA
     Dates: start: 2007, end: 2009
  6. THALIDOMIDE [Suspect]
     Indication: PLASMA CELL MYELOMA
     Dates: start: 2006, end: 2007

REACTIONS (5)
  - Progressive multifocal leukoencephalopathy [Fatal]
  - Hemiplegia [Unknown]
  - Convulsion [Unknown]
  - JC virus infection [Unknown]
  - Septic shock [Unknown]
